FAERS Safety Report 16790316 (Version 1)
Quarter: 2019Q3

REPORT INFORMATION
  Report Type: Spontaneous
  Country: US (occurrence: US)
  Receive Date: 20190719
  Receipt Date: 20190719
  Transmission Date: 20191005
  Serious: No
  Sender: FDA-Public Use
  Company Number: None

PATIENT
  Age: 49 Year
  Sex: Male

DRUGS (1)
  1. LISINOPRIL TAB 10MG OPTUMRX DR. JOVANNA MORRISON [Suspect]
     Active Substance: LISINOPRIL
     Dates: start: 201704

REACTIONS (1)
  - Pharyngeal swelling [None]

NARRATIVE: CASE EVENT DATE: 20190719
